FAERS Safety Report 4634597-3 (Version None)
Quarter: 2005Q2

REPORT INFORMATION
  Report Type: 
  Country: None (occurrence: None)
  Receive Date: 20050413
  Receipt Date: 20050406
  Transmission Date: 20051028
  Serious: Yes (Death, Hospitalization)
  Sender: FDA-Public Use
  Company Number: 2005054437

PATIENT
  Age: 44 Year
  Sex: Male

DRUGS (4)
  1. TAHOR (ATORVASTATIN) [Suspect]
     Indication: HYPERLIPIDAEMIA
     Dosage: 40 MG (40 MG, 1 IN 1 D), ORAL
     Route: 048
     Dates: start: 20041230, end: 20050131
  2. SUCRALFATE [Concomitant]
  3. TAUROURSODESOXYCHOLIC ACID (AUROURSODESOXYCHOLIC ACID) [Concomitant]
  4. PROPRANOLOL HYDROCHLORIDE [Concomitant]

REACTIONS (15)
  - AMYOTROPHY [None]
  - ANURIA [None]
  - ASCITES [None]
  - ASPARTATE AMINOTRANSFERASE INCREASED [None]
  - BLOOD CREATINE PHOSPHOKINASE INCREASED [None]
  - DIALYSIS [None]
  - HEPATIC CIRRHOSIS [None]
  - HEPATORENAL SYNDROME [None]
  - HYPERKALAEMIA [None]
  - JAUNDICE [None]
  - MUSCULAR WEAKNESS [None]
  - PROTHROMBIN TIME RATIO DECREASED [None]
  - RECTAL HAEMORRHAGE [None]
  - RENAL FAILURE ACUTE [None]
  - RHABDOMYOLYSIS [None]
